FAERS Safety Report 24021347 (Version 1)
Quarter: 2024Q2

REPORT INFORMATION
  Report Type: Spontaneous
  Country: CN (occurrence: CN)
  Receive Date: 20240627
  Receipt Date: 20240627
  Transmission Date: 20240717
  Serious: No
  Sender: FDA-Public Use
  Company Number: CN-ROCHE-3536243

PATIENT
  Age: 39 Year
  Sex: Female

DRUGS (2)
  1. COLUMVI [Suspect]
     Active Substance: GLOFITAMAB-GXBM
     Indication: Diffuse large B-cell lymphoma
     Route: 065
  2. COLUMVI [Suspect]
     Active Substance: GLOFITAMAB-GXBM
     Dosage: 3 VIALS
     Route: 065
     Dates: start: 20240327

REACTIONS (2)
  - Cytokine release syndrome [Unknown]
  - Incorrect drug administration rate [Unknown]
